FAERS Safety Report 7997362-5 (Version None)
Quarter: 2011Q4

REPORT INFORMATION
  Report Type: 
  Country: None (occurrence: None)
  Receive Date: 20111221
  Receipt Date: 20111220
  Transmission Date: 20120403
  Serious: Yes (Life-Threatening)
  Sender: FDA-Public Use
  Company Number: JP-B.I. PHARMACEUTICALS,INC./RIDGEFIELD-2011-BP-28425NB

PATIENT
  Age: 80 Year
  Sex: Male

DRUGS (3)
  1. CAPECITABINE [Suspect]
     Indication: LARGE INTESTINE CARCINOMA
  2. OXALIPLATIN [Suspect]
     Indication: LARGE INTESTINE CARCINOMA
  3. PRADAXA [Suspect]
     Indication: ATRIAL FIBRILLATION
     Route: 048
     Dates: start: 20110601

REACTIONS (1)
  - INTERSTITIAL LUNG DISEASE [None]
